FAERS Safety Report 7378160-2 (Version None)
Quarter: 2011Q1

REPORT INFORMATION
  Report Type: 
  Country: None (occurrence: None)
  Receive Date: 20110328
  Receipt Date: 20110321
  Transmission Date: 20110831
  Serious: Yes (Hospitalization, Other)
  Sender: FDA-Public Use
  Company Number: US-B.I. PHARMACEUTICALS,INC./RIDGEFIELD-2011-BP-02463BP

PATIENT
  Age: 77 Year
  Sex: Female
  Weight: 73.94 kg

DRUGS (2)
  1. PRADAXA [Suspect]
     Indication: ATRIAL FIBRILLATION
     Dosage: 300 MG
     Route: 048
     Dates: start: 20110103, end: 20110202
  2. ASPIRIN [Concomitant]
     Dosage: 162 MG
     Dates: start: 20060531, end: 20110202

REACTIONS (6)
  - MELAENA [None]
  - HAEMORRHAGE [None]
  - HAEMATEMESIS [None]
  - HAEMOGLOBIN DECREASED [None]
  - DIZZINESS [None]
  - NAUSEA [None]
